FAERS Safety Report 19438802 (Version 1)
Quarter: 2021Q2

REPORT INFORMATION
  Report Type: Spontaneous
  Country: US (occurrence: US)
  Receive Date: 20210618
  Receipt Date: 20210618
  Transmission Date: 20210717
  Serious: No
  Sender: FDA-Public Use
  Company Number: US-GW PHARMA-202106USGW02933

PATIENT

DRUGS (2)
  1. EPIDIOLEX [Suspect]
     Active Substance: CANNABIDIOL
     Indication: LENNOX-GASTAUT SYNDROME
     Dosage: 100 MILLIGRAM, BID
     Route: 048
     Dates: start: 20210526, end: 2021
  2. EPIDIOLEX [Suspect]
     Active Substance: CANNABIDIOL
     Dosage: ADJUSTING THE DOSE TO REACH MAINTENANCE DOSE
     Route: 048
     Dates: start: 2021

REACTIONS (7)
  - Dizziness [Unknown]
  - Mood altered [Unknown]
  - Fatigue [Unknown]
  - Depression [Unknown]
  - Somnolence [Unknown]
  - Psychomotor hyperactivity [Unknown]
  - Emergency care [Unknown]

NARRATIVE: CASE EVENT DATE: 2021
